FAERS Safety Report 17288977 (Version 2)
Quarter: 2020Q1

REPORT INFORMATION
  Report Type: Spontaneous
  Country: JP (occurrence: JP)
  Receive Date: 20200120
  Receipt Date: 20200205
  Transmission Date: 20200409
  Serious: Yes (Hospitalization, Other)
  Sender: FDA-Public Use
  Company Number: JP-ABBVIE-20K-087-3238529-00

PATIENT
  Age: 49 Year
  Sex: Male

DRUGS (1)
  1. ADALIMUMAB [Suspect]
     Active Substance: ADALIMUMAB
     Indication: CROHN^S DISEASE
     Route: 058

REACTIONS (5)
  - Tubulointerstitial nephritis [Unknown]
  - Clostridium difficile infection [Unknown]
  - Catheter site infection [Unknown]
  - Renal failure [Unknown]
  - Peritonitis [Recovering/Resolving]
